FAERS Safety Report 8361713-2 (Version None)
Quarter: 2012Q2

REPORT INFORMATION
  Report Type: 
  Country: None (occurrence: None)
  Receive Date: 20120515
  Receipt Date: 20120510
  Transmission Date: 20120825
  Serious: Yes (Death)
  Sender: FDA-Public Use
  Company Number: PL-BAXTER-2011BH036463

PATIENT
  Age: 74 Year
  Sex: Female

DRUGS (1)
  1. DIANEAL_2.5% PD2_SOLUTION FOR PERITONEAL DIALYSIS_BAG, PVC [Suspect]
     Route: 033

REACTIONS (1)
  - DEATH [None]
